FAERS Safety Report 5337646-2 (Version None)
Quarter: 2007Q2

REPORT INFORMATION
  Report Type: 
  Country: None (occurrence: None)
  Receive Date: 20070524
  Receipt Date: 20070515
  Transmission Date: 20071010
  Serious: Yes (Other)
  Sender: FDA-Public Use
  Company Number: 235791K06USA

PATIENT
  Age: 32 Year
  Sex: Female

DRUGS (4)
  1. REBIF [Suspect]
     Indication: MULTIPLE SCLEROSIS
     Dosage: SEE IMAGE
     Route: 058
     Dates: start: 20060613, end: 20060801
  2. REBIF [Suspect]
     Indication: MULTIPLE SCLEROSIS
     Dosage: SEE IMAGE
     Route: 058
     Dates: start: 20060101
  3. MINOCYCLINE HCL [Concomitant]
  4. TRICOR [Concomitant]

REACTIONS (2)
  - PERNICIOUS ANAEMIA [None]
  - THYROID CANCER [None]
